FAERS Safety Report 14259778 (Version 2)
Quarter: 2017Q4

REPORT INFORMATION
  Report Type: Report from Study
  Country: NZ (occurrence: NZ)
  Receive Date: 20171207
  Receipt Date: 20171223
  Transmission Date: 20180321
  Serious: Yes (Hospitalization, Other)
  Sender: FDA-Public Use
  Company Number: PHHY2017NZ178085

PATIENT
  Sex: Female

DRUGS (2)
  1. OMNITROPE [Suspect]
     Active Substance: SOMATROPIN
     Dosage: 4 DF, UNK
     Route: 065
  2. OMNITROPE [Suspect]
     Active Substance: SOMATROPIN
     Indication: BLOOD GROWTH HORMONE
     Dosage: 0.5 MG, UNK
     Route: 065

REACTIONS (8)
  - Malaise [Recovered/Resolved]
  - Ill-defined disorder [Unknown]
  - Feeling abnormal [Unknown]
  - Emotional distress [Unknown]
  - Device breakage [Unknown]
  - Device issue [Unknown]
  - Headache [Unknown]
  - Device failure [Unknown]
